FAERS Safety Report 12802993 (Version 3)
Quarter: 2016Q4

REPORT INFORMATION
  Report Type: Spontaneous
  Country: GB (occurrence: GB)
  Receive Date: 20161003
  Receipt Date: 20161006
  Transmission Date: 20170207
  Serious: Yes (Hospitalization)
  Sender: FDA-Public Use
  Company Number: GB-TEVA-696114ISR

PATIENT
  Age: 20 Year
  Sex: Female

DRUGS (1)
  1. DIAZEPAM. [Suspect]
     Active Substance: DIAZEPAM
     Route: 065

REACTIONS (4)
  - Vomiting [Unknown]
  - Sinus tachycardia [Unknown]
  - Syncope [Unknown]
  - Respiratory acidosis [Unknown]
